FAERS Safety Report 23465299 (Version 1)
Quarter: 2024Q1

REPORT INFORMATION
  Report Type: Other
  Country: None (occurrence: US)
  Receive Date: 20240201
  Receipt Date: 20240201
  Transmission Date: 20240410
  Serious: Yes (Death, Life-Threatening)
  Sender: FDA-Public Use
  Company Number: US-California Department of Public Health-2150894

PATIENT
  Age: 9 Month
  Sex: Female
  Weight: 6.5 kg

DRUGS (24)
  1. BABYBIG [Suspect]
     Active Substance: HUMAN BOTULINUM NEUROTOXIN A/B IMMUNE GLOBULIN
     Indication: Botulism
     Route: 041
     Dates: start: 20231208, end: 20231208
  2. Alpha-lipoic acid caps [Concomitant]
     Dates: start: 20231221, end: 20231222
  3. AZITHROMYCIN [Concomitant]
     Active Substance: AZITHROMYCIN
     Dates: start: 20231208, end: 20231222
  4. BIVALIRUDIN [Concomitant]
     Active Substance: BIVALIRUDIN
     Dates: start: 20231208, end: 20231222
  5. CLOBAZAM [Concomitant]
     Active Substance: CLOBAZAM
     Dates: start: 20231215, end: 20231221
  6. DOXYCYCLINE [Concomitant]
     Active Substance: DOXYCYCLINE
     Dates: start: 20231218, end: 20231222
  7. EPINEPHRINE [Concomitant]
     Active Substance: EPINEPHRINE
     Route: 041
     Dates: start: 20231208, end: 20231222
  8. HYDROCORTISONE ACETATE [Concomitant]
     Active Substance: HYDROCORTISONE ACETATE
     Dates: start: 20231212, end: 20231222
  9. KETAMINE HYDROCHLORIDE [Concomitant]
     Active Substance: KETAMINE HYDROCHLORIDE
     Dates: start: 20231217, end: 20231222
  10. LEVALBUTEROL [Concomitant]
     Active Substance: LEVALBUTEROL
     Route: 055
     Dates: start: 20231215, end: 20231222
  11. KEPPRA [Concomitant]
     Active Substance: LEVETIRACETAM
     Route: 041
     Dates: start: 20231220, end: 20231222
  12. LEVOFLOXACIN [Concomitant]
     Active Substance: LEVOFLOXACIN
     Dates: start: 20231206, end: 20231222
  13. LINEZOLID [Concomitant]
     Active Substance: LINEZOLID
     Route: 041
     Dates: start: 20231214, end: 20231222
  14. MUCOMYST [Concomitant]
     Active Substance: ACETYLCYSTEINE
     Route: 055
     Dates: start: 20231215, end: 20231222
  15. HEPARIN [Concomitant]
     Active Substance: HEPARIN SODIUM
     Dates: start: 20231211, end: 20231223
  16. LORAZEPAM [Concomitant]
     Active Substance: LORAZEPAM
     Dates: start: 20231221, end: 20231221
  17. MIDAZOLAM [Concomitant]
     Active Substance: MIDAZOLAM
     Route: 040
     Dates: start: 20231221, end: 20231222
  18. MORPHINE SULFATE [Concomitant]
     Active Substance: MORPHINE SULFATE
     Route: 041
     Dates: start: 20231221, end: 20231221
  19. TPN ELECTROLYTES [Concomitant]
     Active Substance: CALCIUM CHLORIDE\MAGNESIUM CHLORIDE\POTASSIUM CHLORIDE\SODIUM ACETATE ANHYDROUS\SODIUM CHLORIDE
     Route: 041
     Dates: start: 20231208, end: 20231222
  20. PANTOPRAZOLE SODIUM [Concomitant]
     Active Substance: PANTOPRAZOLE SODIUM
     Route: 041
     Dates: start: 20231208, end: 20231222
  21. PHOXILLUM B22K4/0 [Concomitant]
     Active Substance: MAGNESIUM CHLORIDE\POTASSIUM CHLORIDE\SODIUM BICARBONATE\SODIUM CHLORIDE\SODIUM PHOSPHATE, DIBASIC
     Dates: start: 20231208, end: 20231222
  22. POTASSIUM CHLORIDE [Concomitant]
     Active Substance: POTASSIUM CHLORIDE
     Dates: start: 20231221, end: 20231221
  23. BACTRIM [Concomitant]
     Active Substance: SULFAMETHOXAZOLE\TRIMETHOPRIM
     Route: 041
     Dates: start: 20231219, end: 20231222
  24. Ubinquinol [Concomitant]
     Route: 048
     Dates: start: 20231221, end: 20231222

REACTIONS (3)
  - Withdrawal of life support [Fatal]
  - Seizure [Not Recovered/Not Resolved]
  - Status epilepticus [Not Recovered/Not Resolved]

NARRATIVE: CASE EVENT DATE: 20231211
